FAERS Safety Report 14224361 (Version 8)
Quarter: 2018Q3

REPORT INFORMATION
  Report Type: Report from Study
  Country: JP (occurrence: JP)
  Receive Date: 20171126
  Receipt Date: 20180821
  Transmission Date: 20181010
  Serious: Yes (Hospitalization)
  Sender: FDA-Public Use
  Company Number: JP-ROCHE-2028989

PATIENT
  Age: 61 Year
  Sex: Male
  Weight: 63.7 kg

DRUGS (14)
  1. COBIMETINIB. [Suspect]
     Active Substance: COBIMETINIB
     Indication: RECTOSIGMOID CANCER
     Dosage: [YASUKUSURI] FOR SEVEN DAYS TAKEN FOR 21 DAYS (ONLY THE CYCLE ONE IS ?[YASUKUSURI] FOR EIGHT DAYS).,
     Route: 048
     Dates: start: 20171018
  2. ACUATIM [Concomitant]
     Active Substance: NADIFLOXACIN
     Indication: RASH
     Dosage: PROPER QUANTITY/TIME
     Route: 061
     Dates: start: 20171030
  3. ROPION [Concomitant]
     Active Substance: FLURBIPROFEN AXETIL
     Indication: PYREXIA
     Dosage: PROPERLY
     Route: 042
     Dates: start: 20171105
  4. LOCOID [Concomitant]
     Active Substance: HYDROCORTISONE BUTYRATE
     Indication: RASH
     Dosage: PROPER QUANTITY/TIME
     Route: 061
     Dates: start: 20171025
  5. MIYA?BM [Concomitant]
     Active Substance: CLOSTRIDIUM BUTYRICUM SPORES STRAIN M-55
     Indication: DIARRHOEA
     Route: 048
     Dates: start: 20171103
  6. MYSER (JAPAN) [Concomitant]
     Indication: RASH
     Dosage: PROPER QUANTITY/TIME
     Route: 061
     Dates: start: 20171025
  7. RABEPRAZOLE NA [Concomitant]
     Active Substance: RABEPRAZOLE SODIUM
     Indication: GASTRITIS PROPHYLAXIS
     Route: 048
     Dates: start: 20171103
  8. HIRUDOID OINTMENT [Concomitant]
     Indication: RASH
     Dosage: IT IS PROPER QUANTITY/TIME DURING SEVERAL?TIME/DAY.
     Route: 061
     Dates: start: 20171025
  9. ALBUMIN [Concomitant]
     Active Substance: ALBUMIN HUMAN
     Indication: HYPOALBUMINAEMIA
     Dosage: PROPERLY
     Route: 042
     Dates: start: 20171103
  10. CODEINE PHOSPHATE [Concomitant]
     Active Substance: CODEINE PHOSPHATE
     Indication: COUGH
     Dosage: SINGLE USE
     Route: 048
     Dates: start: 20170920
  11. NOVAMIN (JAPAN) [Concomitant]
     Indication: NAUSEA
     Dosage: PROPERLY FIVE MG/DAY
     Route: 030
     Dates: start: 20171105
  12. ATEZOLIZUMAB. [Suspect]
     Active Substance: ATEZOLIZUMAB
     Indication: RECTOSIGMOID CANCER
     Dosage: MOST RECENT DOSE OF ATEZOLIZUMAB ON 02/NOV/2017
     Route: 042
     Dates: start: 20171019
  13. LOPERAMIDE HYDROCHLORIDE. [Concomitant]
     Active Substance: LOPERAMIDE HYDROCHLORIDE
     Indication: DIARRHOEA
     Dosage: PROPERLY
     Route: 048
     Dates: start: 20171101
  14. ALLEGRA [Concomitant]
     Active Substance: FEXOFENADINE HYDROCHLORIDE
     Indication: RASH
     Route: 048
     Dates: start: 20171025

REACTIONS (2)
  - Colitis [Recovering/Resolving]
  - Decreased appetite [Recovered/Resolved]

NARRATIVE: CASE EVENT DATE: 20171103
